FAERS Safety Report 8269563-2 (Version None)
Quarter: 2012Q2

REPORT INFORMATION
  Report Type: 
  Country: None (occurrence: None)
  Receive Date: 20120409
  Receipt Date: 20120326
  Transmission Date: 20120825
  Serious: Yes (Other)
  Sender: FDA-Public Use
  Company Number: PT-BAXTER-2012BH007711

PATIENT
  Age: 65 Year
  Sex: Female

DRUGS (11)
  1. PHYSIONEAL 35 GLUCOSE 1,36% P/V/ 13,6 MG/ML [Suspect]
     Route: 033
  2. SEVELAMER [Concomitant]
  3. ARANESP [Concomitant]
  4. PHYSIONEAL 35 GLUCOSE 2,27% P/V/ 2,27 MG/ML [Suspect]
  5. HYDROXYZINE [Concomitant]
  6. EXTRANEAL [Suspect]
     Route: 033
     Dates: start: 20090601
  7. FOLIC ACID [Concomitant]
  8. PHYSIONEAL 35 GLUCOSE 1,36% P/V/ 13,6 MG/ML [Suspect]
     Route: 033
     Dates: start: 20090601
  9. VITAMIN B COMPLEX CAP [Concomitant]
  10. LORENIN [Concomitant]
  11. EZETIMIBE [Concomitant]

REACTIONS (2)
  - PERITONEAL DIALYSIS COMPLICATION [None]
  - PERITONITIS BACTERIAL [None]
